FAERS Safety Report 5134146-X (Version None)
Quarter: 2006Q4

REPORT INFORMATION
  Report Type: 
  Country: None (occurrence: None)
  Receive Date: 20061024
  Receipt Date: 20061016
  Transmission Date: 20070319
  Serious: Yes (Death)
  Sender: FDA-Public Use
  Company Number: US-BRISTOL-MYERS SQUIBB COMPANY-13548193

PATIENT

DRUGS (3)
  1. CYCLOPHOSPHAMIDE [Suspect]
  2. ADRIAMYCIN [Suspect]
  3. DOCETAXEL [Suspect]

REACTIONS (1)
  - DEATH [None]
